FAERS Safety Report 4385355-9 (Version None)
Quarter: 2004Q2

REPORT INFORMATION
  Report Type: 
  Country: None (occurrence: None)
  Receive Date: 20040628
  Receipt Date: 20040618
  Transmission Date: 20050107
  Serious: Yes (Other)
  Sender: FDA-Public Use
  Company Number: PHBS2004JP08069

PATIENT
  Sex: Male

DRUGS (1)
  1. TEGRETOL [Suspect]
     Indication: SCHIZOPHRENIA
     Dosage: 800 MG/DAY
     Route: 048

REACTIONS (5)
  - CATAPLEXY [None]
  - CONVULSION [None]
  - LEUKOPENIA [None]
  - STUPOR [None]
  - WHITE BLOOD CELL COUNT DECREASED [None]
